FAERS Safety Report 5806962-X (Version None)
Quarter: 2008Q3

REPORT INFORMATION
  Report Type: 
  Country: None (occurrence: None)
  Receive Date: 20080711
  Receipt Date: 20080702
  Transmission Date: 20090109
  Serious: Yes (Other)
  Sender: FDA-Public Use
  Company Number: US-ROCHE-573648

PATIENT
  Sex: Female

DRUGS (1)
  1. CAPECITABINE [Suspect]
     Indication: BREAST CANCER
     Dosage: 1500 MG IN THE MORNING AND 1000 MG IN THE EVENING.
     Route: 048
     Dates: start: 20070906, end: 20080611

REACTIONS (2)
  - DISEASE PROGRESSION [None]
  - NEOPLASM [None]
